FAERS Safety Report 14148345 (Version 1)
Quarter: 2017Q4

REPORT INFORMATION
  Report Type: Spontaneous
  Country: US (occurrence: None)
  Receive Date: 20171031
  Receipt Date: 20171031
  Transmission Date: 20180321
  Serious: No
  Sender: FDA-Public Use
  Company Number: None

PATIENT
  Sex: Female

DRUGS (1)
  1. GILENYA [Suspect]
     Active Substance: FINGOLIMOD HYDROCHLORIDE
     Indication: RHEUMATOID ARTHRITIS
     Dosage: 1 CAP DAILY PO
     Route: 048
     Dates: start: 201710

REACTIONS (1)
  - Heart rate decreased [None]
